FAERS Safety Report 24776186 (Version 1)
Quarter: 2024Q4

REPORT INFORMATION
  Report Type: Spontaneous
  Country: LV (occurrence: LV)
  Receive Date: 20241226
  Receipt Date: 20241226
  Transmission Date: 20250115
  Serious: Yes (Other)
  Sender: AUROBINDO
  Company Number: LV-NOVOPROD-1329061

PATIENT
  Sex: Female

DRUGS (14)
  1. PIPERACILLIN AND TAZOBACTAM [Suspect]
     Active Substance: PIPERACILLIN SODIUM\TAZOBACTAM SODIUM
     Indication: Product used for unknown indication
     Dosage: UNK
     Route: 065
  2. CYCLOPHOSPHAMIDE [Suspect]
     Active Substance: CYCLOPHOSPHAMIDE
     Indication: Product used for unknown indication
     Dosage: UNK, 100MG P/O (1.5MG/KG) WAS INITIATED, THE DOSE ESCALATING TO 150MG (TOTAL COURSE DOSE - 4950MG)
     Route: 065
     Dates: start: 20240718
  3. DIGOXIN [Suspect]
     Active Substance: DIGOXIN
     Indication: Cardiovascular event prophylaxis
     Dosage: UNK
     Route: 065
  4. MEROPENEM [Suspect]
     Active Substance: MEROPENEM
     Indication: Product used for unknown indication
     Dosage: UNK
     Route: 065
  5. METOPROLOL [Suspect]
     Active Substance: METOPROLOL
     Indication: Cardiovascular event prophylaxis
     Dosage: UNK
     Route: 065
  6. NOVOSEVEN [Suspect]
     Active Substance: COAGULATION FACTOR VIIA RECOMBINANT HUMAN
     Indication: Acquired haemophilia
     Dosage: UNK, 6MG I/V 4XD (90MCG/KG) WAS INITIATED
     Route: 042
     Dates: start: 20240710
  7. DESMOPRESSIN ACETATE [Suspect]
     Active Substance: DESMOPRESSIN ACETATE
     Indication: Product used for unknown indication
     Dosage: UNK
     Route: 065
  8. PREDNISOLONE [Suspect]
     Active Substance: PREDNISOLONE
     Indication: Product used for unknown indication
     Dosage: UNK, 70MG P/O (1MG/KG)
     Route: 065
     Dates: start: 20240718
  9. RITUXIMAB [Suspect]
     Active Substance: RITUXIMAB
     Indication: Product used for unknown indication
     Dosage: UNK, 700MG I/V (375MG/M2) 1 X WEEK (4 TIMES, 1 MAINTENANCE DOSE) WAS STARTED
     Route: 065
     Dates: start: 20240802
  10. SPIRONOLACTONE [Suspect]
     Active Substance: SPIRONOLACTONE
     Indication: Cardiovascular event prophylaxis
     Dosage: UNK
     Route: 065
  11. TRANEXAMIC ACID [Suspect]
     Active Substance: TRANEXAMIC ACID
     Indication: Product used for unknown indication
     Dosage: UNK
     Route: 065
  12. TORSEMIDE [Suspect]
     Active Substance: TORSEMIDE
     Indication: Cardiovascular event prophylaxis
     Dosage: UNK
     Route: 065
  13. NOVOSEVEN [Suspect]
     Active Substance: COAGULATION FACTOR VIIA RECOMBINANT HUMAN
     Indication: Acquired haemophilia
     Dosage: UNK 6MG I/V 4XD (90MCG/KG) WAS INITIATED
     Route: 042
     Dates: start: 20240710
  14. FRESH FROZEN PLASMA [Concomitant]
     Active Substance: HUMAN PLASMA
     Indication: Product used for unknown indication
     Dosage: UNK
     Route: 065

REACTIONS (7)
  - Arterial haemorrhage [Unknown]
  - Pneumonia [Unknown]
  - Puncture site haematoma [Unknown]
  - Pneumocystis jirovecii pneumonia [Unknown]
  - Toxic skin eruption [Unknown]
  - Thrombosis [Unknown]
  - Urinary tract disorder [Unknown]

NARRATIVE: CASE EVENT DATE: 20240711
